FAERS Safety Report 11441707 (Version 5)
Quarter: 2016Q1

REPORT INFORMATION
  Report Type: Report from Study
  Country: US (occurrence: US)
  Receive Date: 20150901
  Receipt Date: 20160222
  Transmission Date: 20160525
  Serious: Yes (Hospitalization)
  Sender: FDA-Public Use
  Company Number: US-EISAI MEDICAL RESEARCH-EC-2014-000320

PATIENT
  Age: 68 Year
  Sex: Male
  Weight: 106.3 kg

DRUGS (14)
  1. GABAPENTIN. [Concomitant]
     Active Substance: GABAPENTIN
  2. ALLOPURINOL. [Concomitant]
     Active Substance: ALLOPURINOL
  3. LESCOL XL [Concomitant]
     Active Substance: FLUVASTATIN SODIUM
  4. CARVEDILOL. [Concomitant]
     Active Substance: CARVEDILOL
  5. LENVATINIB [Suspect]
     Active Substance: LENVATINIB
     Route: 048
     Dates: start: 20150827
  6. LENVATINIB [Suspect]
     Active Substance: LENVATINIB
     Route: 048
     Dates: start: 20150807, end: 20150826
  7. AMLODIPINE BENAZEPRIL [Concomitant]
     Active Substance: AMLODIPINE BESYLATE\BENAZEPRIL HYDROCHLORIDE
  8. SYNTHROID [Concomitant]
     Active Substance: LEVOTHYROXINE SODIUM
  9. LENVATINIB [Suspect]
     Active Substance: LENVATINIB
     Indication: THYROID CANCER
     Route: 048
     Dates: start: 20120314, end: 20130627
  10. LENVATINIB [Suspect]
     Active Substance: LENVATINIB
     Route: 048
     Dates: start: 20130628, end: 20150802
  11. ALENDRONATE [Concomitant]
     Active Substance: ALENDRONATE SODIUM
  12. ZETIA [Concomitant]
     Active Substance: EZETIMIBE
  13. METFORMIN [Concomitant]
     Active Substance: METFORMIN HYDROCHLORIDE
  14. JANUVIA [Concomitant]
     Active Substance: SITAGLIPTIN PHOSPHATE

REACTIONS (2)
  - Colitis [Recovered/Resolved]
  - Syncope [Recovered/Resolved]

NARRATIVE: CASE EVENT DATE: 20140910
